FAERS Safety Report 4654543-6 (Version None)
Quarter: 2005Q2

REPORT INFORMATION
  Report Type: 
  Country: None (occurrence: None)
  Receive Date: 20050504
  Receipt Date: 20050504
  Transmission Date: 20051028
  Serious: No
  Sender: FDA-Public Use
  Company Number: None

PATIENT
  Sex: Female
  Weight: 60.5 kg

DRUGS (7)
  1. ETOPOSIDE [Suspect]
     Dosage: 10 MG/KG/DAY CIV ON DAYS 1-4
     Route: 042
     Dates: start: 20040611
  2. CYTARABINE [Suspect]
     Dosage: 2000 MG/M2 IV OVER 2 HR EVERY 12 HRS ON DAYS 1-4
     Route: 042
  3. G-CSF [Suspect]
     Dosage: 10 MCG/KG/DAY SC BEGINNING ON DAY 14
     Route: 058
  4. GLEEVEC [Suspect]
     Dosage: 400 MG PO BID BEGINNING AFTER COMPL OF PBSC COLLECTION AND CONTINUING UNTIL 3 DAYS PRIOR TO ADMIS
     Route: 048
  5. ALLOPURINOL [Suspect]
     Dosage: 300 MG PO QD ON DAYS -9 TO -2
     Route: 048
  6. ETOPOSIDE [Suspect]
     Dosage: 60 MG/KG IV OVER 4 HOURS ON DAY-4
     Route: 042
  7. CYCLOPHOSPHAMIDE [Suspect]
     Dosage: 100 MG/KG IV OVER 2 HRS ON DAY-2
     Route: 042

REACTIONS (9)
  - ABDOMINAL PAIN [None]
  - ALPHA HAEMOLYTIC STREPTOCOCCAL INFECTION [None]
  - CAECITIS [None]
  - CHILLS [None]
  - DIARRHOEA [None]
  - ESCHERICHIA INFECTION [None]
  - HYPOTENSION [None]
  - NAUSEA [None]
  - PYREXIA [None]
